FAERS Safety Report 8091553-3 (Version None)
Quarter: 2012Q1

REPORT INFORMATION
  Report Type: 
  Country: None (occurrence: None)
  Receive Date: 20120131
  Receipt Date: 20120128
  Transmission Date: 20120608
  Serious: No
  Sender: FDA-Public Use
  Company Number: US-PFIZER INC-2012023616

PATIENT
  Sex: Female
  Weight: 90.703 kg

DRUGS (7)
  1. CHANTIX [Suspect]
     Indication: SMOKING CESSATION THERAPY
     Dosage: 0.5 MG, DAILY
     Route: 048
     Dates: start: 20120128
  2. NAPROXEN [Concomitant]
     Indication: FIBROMYALGIA
     Dosage: 500 MG, AS NEEDED
  3. NAPROXEN [Concomitant]
     Indication: PSORIATIC ARTHROPATHY
  4. CETIRIZINE [Concomitant]
     Indication: RHINORRHOEA
     Dosage: 10 MG, DAILY
  5. FLUTICASONE PROPIONATE [Concomitant]
     Indication: DYSPNOEA
     Dosage: UNK, 2X/DAY
     Route: 045
  6. LISINOPRIL [Concomitant]
     Indication: BLOOD PRESSURE ABNORMAL
     Dosage: 10 MG, DAILY
  7. PRAVASTATIN [Concomitant]
     Indication: BLOOD CHOLESTEROL INCREASED
     Dosage: 20 MG, DAILY

REACTIONS (2)
  - DIZZINESS [None]
  - ANXIETY [None]
